FAERS Safety Report 21747564 (Version 6)
Quarter: 2024Q2

REPORT INFORMATION
  Report Type: Spontaneous
  Country: PK (occurrence: PK)
  Receive Date: 20221219
  Receipt Date: 20240425
  Transmission Date: 20240715
  Serious: Yes (Other)
  Sender: FDA-Public Use
  Company Number: PK-PFIZER INC-2020519681

PATIENT
  Age: 22 Year
  Sex: Female
  Weight: 50 kg

DRUGS (15)
  1. ENBREL [Suspect]
     Active Substance: ETANERCEPT
     Indication: Rheumatoid arthritis
     Dosage: 50 MG, EVERY 02 WEEKS
     Route: 058
     Dates: start: 20201201
  2. ENBREL [Suspect]
     Active Substance: ETANERCEPT
     Indication: Seronegative arthritis
     Dosage: 50 MILLIGRAM, QWK
     Route: 058
     Dates: start: 20201230
  3. ENBREL [Suspect]
     Active Substance: ETANERCEPT
     Dosage: 50 MILLIGRAM, QWK
     Route: 058
  4. ENBREL [Suspect]
     Active Substance: ETANERCEPT
     Dosage: 50 MG, EVERY 10TH DAY
     Route: 058
  5. ENBREL [Suspect]
     Active Substance: ETANERCEPT
     Dosage: 50 MILLIGRAM, QWK
     Route: 058
     Dates: start: 20210803
  6. ENBREL [Suspect]
     Active Substance: ETANERCEPT
     Dosage: 50MG, EVERY TWO WEEKS
     Route: 058
  7. HYDROXYCHLOROQUINE SULFATE [Concomitant]
     Active Substance: HYDROXYCHLOROQUINE SULFATE
     Dosage: 200 MG ( 0 + 0 + 1 + 0, AFTER MEAL, 1 TAB IN EVENING, AFTER MEAL CONTINUE, ON SUNDAY ONLY 1 +1)
  8. FOLIC ACID [Concomitant]
     Active Substance: FOLIC ACID
     Dosage: 5 MG, 1X/DAY (1 TAB IN THE MORNING)
  9. LEFLUNOMIDE [Concomitant]
     Active Substance: LEFLUNOMIDE
     Dosage: 20 MG, 1X/DAY
  10. LEFLUNOMIDE [Concomitant]
     Active Substance: LEFLUNOMIDE
     Dosage: 20 MG, DAILY
  11. LEFLUNOMIDE [Concomitant]
     Active Substance: LEFLUNOMIDE
     Dosage: 1 TABLET IN EVENING
  12. ALKERIS [Concomitant]
     Dosage: UNK, 2X/DAY (1+0+1+0 , AFTER MEAL, 1+1 IN MORNING AND EVENING AFTER MEAL AS PER NEED)
  13. ALKERIS [Concomitant]
     Dosage: UNK, 2X/DAY (1+0+1+0 , AFTER MEAL, 1+1 IN MORNING AND EVENING AFTER MEAL AS PER NEED)
  14. CHOLECALCIFEROL [Concomitant]
     Active Substance: CHOLECALCIFEROL
     Dosage: 1 DF, MONTHLY
  15. CAC [Concomitant]
     Dosage: 1 DF, 1X/DAY (0+1+0+0)

REACTIONS (12)
  - Joint swelling [Unknown]
  - Synovitis [Unknown]
  - Cough [Unknown]
  - Musculoskeletal stiffness [Unknown]
  - Alopecia [Unknown]
  - Joint dislocation [Unknown]
  - Joint range of motion decreased [Unknown]
  - Synovial disorder [Unknown]
  - Joint space narrowing [Unknown]
  - Off label use [Unknown]
  - Dyspnoea [Unknown]
  - Arthralgia [Unknown]
